FAERS Safety Report 20093239 (Version 2)
Quarter: 2021Q4

REPORT INFORMATION
  Report Type: Spontaneous
  Country: IT (occurrence: IT)
  Receive Date: 20211120
  Receipt Date: 20211201
  Transmission Date: 20220303
  Serious: Yes (Life-Threatening, Hospitalization, Other)
  Sender: FDA-Public Use
  Company Number: IT-002147023-NVSC2021IT263525

PATIENT
  Age: 56 Year
  Sex: Male
  Weight: 110 kg

DRUGS (7)
  1. AIMOVIG [Suspect]
     Active Substance: ERENUMAB-AOOE
     Indication: Product used for unknown indication
     Dosage: 70 MILLIGRAM
     Route: 065
  2. AIMOVIG [Suspect]
     Active Substance: ERENUMAB-AOOE
     Dosage: 140 MILLIGRAM
     Route: 065
  3. SUMATRIPTAN [Suspect]
     Active Substance: SUMATRIPTAN
     Indication: Product used for unknown indication
     Dosage: 6 MILLIGRAM, QD  (UP TO A MAXIMUM OF 37 MONTHLY INJECTIONS)
     Route: 058
  4. ASPIRIN [Concomitant]
     Active Substance: ASPIRIN
     Indication: Myocardial ischaemia
     Dosage: 100 MILLIGRAM, QD
     Route: 065
     Dates: start: 2012
  5. OMEPRAZOLE [Concomitant]
     Active Substance: OMEPRAZOLE
     Indication: Product used for unknown indication
     Dosage: 20 MILLIGRAM, QD
     Route: 065
  6. CANDESARTAN [Concomitant]
     Active Substance: CANDESARTAN
     Indication: Product used for unknown indication
     Dosage: 16 MILLIGRAM, QD
     Route: 065
  7. ROSUVASTATIN [Concomitant]
     Active Substance: ROSUVASTATIN
     Indication: Product used for unknown indication
     Dosage: 20 MILLIGRAM, QD
     Route: 065

REACTIONS (10)
  - Acute myocardial infarction [Recovered/Resolved with Sequelae]
  - Angina pectoris [Unknown]
  - Pain in extremity [Unknown]
  - Ventricular hypokinesia [Unknown]
  - Chest discomfort [Unknown]
  - Coronary artery occlusion [Unknown]
  - Arteriospasm coronary [Unknown]
  - Ventricular fibrillation [Unknown]
  - Contraindicated product administered [Unknown]
  - Drug abuse [Unknown]
